FAERS Safety Report 17153832 (Version 2)
Quarter: 2020Q1

REPORT INFORMATION
  Report Type: Spontaneous
  Country: DE (occurrence: DE)
  Receive Date: 20191213
  Receipt Date: 20200312
  Transmission Date: 20200409
  Serious: Yes (Hospitalization, Other)
  Sender: FDA-Public Use
  Company Number: DE-MYLANLABS-2019M1122707

PATIENT
  Sex: Male
  Weight: 110 kg

DRUGS (10)
  1. AZATHIOPRINE. [Suspect]
     Active Substance: AZATHIOPRINE
     Indication: COLITIS ULCERATIVE
     Dosage: 100 MG, QD
     Route: 065
     Dates: start: 20181115
  2. ZESSLY [Suspect]
     Active Substance: INFLIXIMAB
     Indication: COLITIS ULCERATIVE
     Dosage: 550 MILLIGRAM
     Route: 065
     Dates: start: 20190319
  3. ZESSLY [Suspect]
     Active Substance: INFLIXIMAB
     Dosage: 565 MILLIGRAM
     Route: 065
     Dates: start: 20190402
  4. ZESSLY [Suspect]
     Active Substance: INFLIXIMAB
     Dosage: 575 MILLIGRAM
     Route: 065
     Dates: start: 20190430
  5. PREDNISOLONE. [Suspect]
     Active Substance: PREDNISOLONE
     Indication: COLITIS ULCERATIVE
     Dosage: 60 MILLIGRAM, QD
     Route: 065
     Dates: start: 20190727
  6. ZESSLY [Suspect]
     Active Substance: INFLIXIMAB
     Dosage: 575 MILLIGRAM
     Route: 065
     Dates: start: 20190625
  7. ZESSLY [Suspect]
     Active Substance: INFLIXIMAB
     Dosage: UNK
  8. FERROSANOL [Concomitant]
     Active Substance: FERROUS GLUCONATE
     Indication: IRON DEFICIENCY
     Dosage: 50 MG, QD
     Route: 065
     Dates: start: 20190727
  9. COTRIM [Concomitant]
     Active Substance: SULFAMETHOXAZOLE\TRIMETHOPRIM
     Indication: ANTIFUNGAL PROPHYLAXIS
     Dosage: 960 MG, Q3W
     Route: 065
     Dates: start: 20190731
  10. ZESSLY [Suspect]
     Active Substance: INFLIXIMAB
     Dosage: 560 MILLIGRAM
     Route: 065
     Dates: start: 20190724

REACTIONS (2)
  - Diarrhoea haemorrhagic [Recovered/Resolved]
  - Colitis ulcerative [Recovered/Resolved]

NARRATIVE: CASE EVENT DATE: 20190727
